FAERS Safety Report 8522275-X (Version None)
Quarter: 2012Q3

REPORT INFORMATION
  Report Type: 
  Country: None (occurrence: None)
  Receive Date: 20120719
  Receipt Date: 20120710
  Transmission Date: 20120928
  Serious: Yes (Hospitalization)
  Sender: FDA-Public Use
  Company Number: US-ASTRAZENECA-2012SE42313

PATIENT
  Age: 29555 Day
  Sex: Male

DRUGS (11)
  1. BRILINTA [Suspect]
     Indication: CORONARY ARTERY DISEASE
     Route: 048
     Dates: start: 20120510, end: 20120618
  2. QUINAPRIL [Concomitant]
     Indication: HYPERTENSION
     Route: 048
  3. ASPIRIN [Concomitant]
     Route: 048
     Dates: start: 20120510
  4. PLAVIX [Concomitant]
     Route: 048
     Dates: start: 20120629
  5. SUBLINGUAL NTG [Concomitant]
     Indication: ANGINA PECTORIS
     Route: 060
  6. PLAVIX [Concomitant]
     Indication: CORONARY ARTERY DISEASE
     Route: 048
     Dates: end: 20120509
  7. ASPIRIN [Concomitant]
     Route: 048
     Dates: end: 20120509
  8. EVEROLIMUS [Concomitant]
  9. GABAPENTIN [Concomitant]
     Indication: RESTLESS LEGS SYNDROME
     Route: 048
  10. PRAVASTATIN [Concomitant]
     Indication: DYSLIPIDAEMIA
     Route: 048
  11. ATENOLOL [Concomitant]
     Indication: HYPERTENSION
     Route: 048

REACTIONS (1)
  - PULMONARY HYPERTENSION [None]
